FAERS Safety Report 7277280 (Version 2)
Quarter: 2012Q4

REPORT INFORMATION
  Report Type: 
  Country: NL (occurrence: NL)
  Receive Date: 20100212
  Receipt Date: 20121220
  Transmission Date: 20130627
  Serious: Yes (Hospitalization, Other)
  Sender: FDA-Public Use
  Company Number: NL-JNJFOC-20091100122

PATIENT
  Age: 89 Year
  Sex: Female

DRUGS (7)
  1. TRAMADOL HYDROCHLORIDE [Suspect]
     Indication: FRACTURE PAIN
     Route: 065
  2. TRAMADOL HYDROCHLORIDE [Suspect]
     Indication: PAIN
     Route: 065
  3. CITALOPRAM [Interacting]
     Indication: BIPOLAR DISORDER
     Route: 065
  4. L-TRYPTOPHAN [Suspect]
     Indication: BIPOLAR DISORDER
     Route: 065
  5. VALPROATE [Suspect]
     Indication: BIPOLAR DISORDER
     Route: 065
  6. TEMAZEPAM [Suspect]
     Indication: BIPOLAR DISORDER
     Route: 065
  7. CALCICHEW [Concomitant]
     Indication: BIPOLAR DISORDER
     Route: 065

REACTIONS (6)
  - Serotonin syndrome [Recovered/Resolved]
  - Hallucinations, mixed [Unknown]
  - Agitation [Unknown]
  - Drug interaction [Unknown]
  - Confusional state [Unknown]
  - Abnormal behaviour [Unknown]
